FAERS Safety Report 7042235-8 (Version None)
Quarter: 2010Q4

REPORT INFORMATION
  Report Type: 
  Country: None (occurrence: None)
  Receive Date: 20101013
  Receipt Date: 20101001
  Transmission Date: 20110411
  Serious: Yes (Other)
  Sender: FDA-Public Use
  Company Number: FR-WYE-H17845510

PATIENT
  Sex: Female

DRUGS (17)
  1. EUPANTOL [Suspect]
     Route: 048
     Dates: start: 20100614
  2. PARACETAMOL [Suspect]
     Route: 048
     Dates: start: 20100614, end: 20100618
  3. ZOFRAN [Suspect]
     Route: 048
     Dates: start: 20100614
  4. LEXOMIL [Suspect]
     Route: 048
     Dates: start: 20100614
  5. STILNOX [Suspect]
     Route: 048
     Dates: start: 20100614
  6. HYDROCORTISONE SODIUM PHOSPHATE [Suspect]
     Dosage: 100 MG, THEN PROGRESSIVE DECREASE
     Route: 048
     Dates: start: 20100614
  7. ULTRA-LEVURE [Suspect]
     Route: 048
     Dates: start: 20100614
  8. LOVENOX [Concomitant]
     Dosage: UNKNOWN DOSE
     Route: 058
     Dates: start: 20100101, end: 20100101
  9. INNOHEP [Concomitant]
     Dosage: UNKNOWN DOSE
  10. AUGMENTIN '125' [Concomitant]
     Route: 048
     Dates: start: 20100614, end: 20100616
  11. AUGMENTIN '125' [Concomitant]
     Route: 048
     Dates: start: 20100617, end: 20100621
  12. SPASFON [Concomitant]
     Route: 048
     Dates: start: 20100614, end: 20100621
  13. PRIMPERAN [Concomitant]
     Route: 048
     Dates: start: 20100618
  14. DEBRIDAT [Concomitant]
     Route: 048
     Dates: start: 20100618
  15. ESTRONE/PROGESTERONE [Concomitant]
  16. LYSODREN [Suspect]
     Route: 048
     Dates: start: 20100604, end: 20100617
  17. LYSODREN [Suspect]
     Route: 048
     Dates: start: 20100618, end: 20100623

REACTIONS (4)
  - CONDITION AGGRAVATED [None]
  - CYTOLYTIC HEPATITIS [None]
  - DYSPEPSIA [None]
  - LIVER DISORDER [None]
